FAERS Safety Report 20637206 (Version 5)
Quarter: 2022Q2

REPORT INFORMATION
  Report Type: Report from Study
  Country: DE (occurrence: DE)
  Receive Date: 20220325
  Receipt Date: 20220516
  Transmission Date: 20220721
  Serious: No
  Sender: FDA-Public Use
  Company Number: DE-Merck Healthcare KGaA-9307709

PATIENT
  Age: 78 Year
  Sex: Male
  Weight: 85 kg

DRUGS (13)
  1. CETUXIMAB [Suspect]
     Active Substance: CETUXIMAB
     Indication: Squamous cell carcinoma of skin
     Dosage: 1050 MG, UNKNOWN
     Route: 042
     Dates: start: 20210413
  2. CETUXIMAB [Suspect]
     Active Substance: CETUXIMAB
     Dosage: 1052 MG, UNKNOWN
     Route: 042
     Dates: start: 20220222, end: 20220222
  3. AVELUMAB [Concomitant]
     Active Substance: AVELUMAB
     Indication: Squamous cell carcinoma of skin
     Dosage: 840 MG, UNKNOWN
     Route: 042
     Dates: start: 20210413
  4. AVELUMAB [Concomitant]
     Active Substance: AVELUMAB
     Dosage: 840 MG, UNKNOWN
     Route: 042
     Dates: start: 20220222, end: 20220222
  5. METOPROLOL [Concomitant]
     Active Substance: METOPROLOL
     Indication: Product used for unknown indication
     Dosage: 47.5 MG, UNK
     Route: 048
     Dates: start: 20060101
  6. RAMIPRIL [Concomitant]
     Active Substance: RAMIPRIL
     Indication: Product used for unknown indication
     Dosage: 5 MG, UNK
     Route: 048
     Dates: start: 20100303
  7. SIMVASTATIN [Concomitant]
     Active Substance: SIMVASTATIN
     Indication: Product used for unknown indication
     Dosage: 40 MG, UNK
     Route: 048
     Dates: start: 20100303
  8. TORSEMIDE [Concomitant]
     Active Substance: TORSEMIDE
     Indication: Product used for unknown indication
     Dosage: 5 MG, UNK
     Route: 048
     Dates: start: 20100303
  9. RIVAROXABAN [Concomitant]
     Active Substance: RIVAROXABAN
     Indication: Product used for unknown indication
     Dosage: 20 MG, UNK
     Route: 048
     Dates: start: 20100303
  10. PREDNISOLONE [Concomitant]
     Active Substance: PREDNISOLONE
     Indication: Product used for unknown indication
     Dosage: 50 MG, UNK
     Route: 048
     Dates: start: 20210413
  11. LEVOCETIRIZINE [Concomitant]
     Active Substance: LEVOCETIRIZINE
     Indication: Product used for unknown indication
     Dosage: 5 MG, UNK
     Route: 048
     Dates: start: 20210413
  12. ERYTHROMYCIN [Concomitant]
     Active Substance: ERYTHROMYCIN
     Indication: Product used for unknown indication
     Dosage: DOSE AS NEEDED, PRN
     Route: 003
     Dates: start: 20210427
  13. PREGABALIN [Concomitant]
     Active Substance: PREGABALIN
     Indication: Product used for unknown indication
     Dosage: DOSE AS NEEDED, PRN
     Route: 048
     Dates: start: 20201209

REACTIONS (1)
  - Sarcoid-like reaction [Not Recovered/Not Resolved]

NARRATIVE: CASE EVENT DATE: 20220215
